FAERS Safety Report 11904933 (Version 1)
Quarter: 2016Q1

REPORT INFORMATION
  Report Type: Report from Study
  Country: DE (occurrence: DE)
  Receive Date: 20160108
  Receipt Date: 20160108
  Transmission Date: 20160526
  Serious: Yes (Other)
  Sender: FDA-Public Use
  Company Number: DE-CELGENE-062-21880-13112485

PATIENT

DRUGS (3)
  1. DEXAMETHASONE. [Suspect]
     Active Substance: DEXAMETHASONE
     Indication: PLASMA CELL MYELOMA
     Dosage: 40 MILLIGRAM
     Route: 048
  2. MELPHALAN [Suspect]
     Active Substance: MELPHALAN
     Indication: PLASMA CELL MYELOMA
     Route: 065
  3. REVLIMID [Suspect]
     Active Substance: LENALIDOMIDE
     Indication: PLASMA CELL MYELOMA
     Dosage: 25 MILLIGRAM
     Route: 048

REACTIONS (15)
  - Hypoaesthesia [Unknown]
  - Paraplegia [Unknown]
  - Staphylococcal infection [Unknown]
  - Abdominal pain upper [Unknown]
  - Pancytopenia [Unknown]
  - Rash [Unknown]
  - Granulocytopenia [Unknown]
  - Leukopenia [Unknown]
  - Hypersensitivity [Unknown]
  - Gastroenteritis [Unknown]
  - Scrotal infection [Unknown]
  - Electrocardiogram T wave inversion [Unknown]
  - Pneumonia [Unknown]
  - Thrombocytopenia [Unknown]
  - Asthenia [Unknown]
